FAERS Safety Report 20837237 (Version 1)
Quarter: 2022Q2

REPORT INFORMATION
  Report Type: Spontaneous
  Country: US (occurrence: US)
  Receive Date: 20220517
  Receipt Date: 20220517
  Transmission Date: 20220721
  Serious: Yes (Other)
  Sender: FDA-Public Use
  Company Number: US-SA-SAC20220512001954

PATIENT
  Age: 40 Year
  Sex: Female

DRUGS (2)
  1. ZANTAC [Suspect]
     Active Substance: RANITIDINE HYDROCHLORIDE
     Indication: Abdominal discomfort
     Dosage: UNKNOWN; QW
     Route: 065
     Dates: start: 199903, end: 200612
  2. ZANTAC [Suspect]
     Active Substance: RANITIDINE HYDROCHLORIDE
     Indication: Dyspepsia

REACTIONS (6)
  - Colorectal cancer stage II [Unknown]
  - Uterine cancer [Unknown]
  - Gastric cancer stage II [Unknown]
  - Cervix carcinoma stage II [Unknown]
  - Lymphadenopathy [Unknown]
  - Cervix disorder [Unknown]

NARRATIVE: CASE EVENT DATE: 20061201
